FAERS Safety Report 19474941 (Version 1)
Quarter: 2021Q2

REPORT INFORMATION
  Report Type: Spontaneous
  Country: US (occurrence: US)
  Receive Date: 20210629
  Receipt Date: 20210629
  Transmission Date: 20210717
  Serious: No
  Sender: FDA-Public Use
  Company Number: US-SA-2021SA190348

PATIENT
  Sex: Female

DRUGS (3)
  1. RADIESSE [Suspect]
     Active Substance: TRIBASIC CALCIUM PHOSPHATE
     Dosage: UNK
  2. SCULPTRA [Suspect]
     Active Substance: POLYLACTIDE, L-
     Dosage: UNK
  3. DUPIXENT [Suspect]
     Active Substance: DUPILUMAB
     Indication: DERMATITIS ATOPIC
     Dosage: 300 MG, QOW
     Dates: start: 2021

REACTIONS (3)
  - Injection site mass [Not Recovered/Not Resolved]
  - Type IV hypersensitivity reaction [Not Recovered/Not Resolved]
  - Adverse reaction [Not Recovered/Not Resolved]

NARRATIVE: CASE EVENT DATE: 2021
